FAERS Safety Report 4316021-3 (Version None)
Quarter: 2004Q1

REPORT INFORMATION
  Report Type: 
  Country: None (occurrence: None)
  Receive Date: 20040311
  Receipt Date: 20040121
  Transmission Date: 20041129
  Serious: Yes (Death, Hospitalization)
  Sender: FDA-Public Use
  Company Number: WAES 0401GBR00172

PATIENT
  Age: 84 Year
  Sex: Female

DRUGS (5)
  1. FOSAMAX [Suspect]
     Indication: OSTEOPOROSIS
     Route: 048
     Dates: start: 20031120, end: 20040119
  2. ALLOPURINOL [Concomitant]
  3. FUROSEMIDE [Concomitant]
  4. SIMVASTATIN [Concomitant]
  5. SPIRONOLACTONE [Concomitant]

REACTIONS (5)
  - ABDOMINAL PAIN [None]
  - BRONCHOPNEUMONIA [None]
  - PRURITUS [None]
  - RENAL FAILURE CHRONIC [None]
  - VOMITING [None]
